FAERS Safety Report 16006390 (Version 1)
Quarter: 2019Q1

REPORT INFORMATION
  Report Type: Spontaneous
  Country: US (occurrence: US)
  Receive Date: 20190130
  Receipt Date: 20190130
  Transmission Date: 20190418
  Serious: No
  Sender: FDA-Public Use
  Company Number: None

PATIENT
  Age: 65 Year
  Sex: Male
  Weight: 72.57 kg

DRUGS (6)
  1. CLONAZEPAM GENERIC KLONOPIN [Suspect]
     Active Substance: CLONAZEPAM
     Dosage: 1 MG 1 PILL BEFORE BED TIME DAILY BY MOUTH
     Route: 048
     Dates: start: 20150520
  2. CLONAZEPAM. [Concomitant]
     Active Substance: CLONAZEPAM
  3. LISINOPRIL. [Concomitant]
     Active Substance: LISINOPRIL
  4. CARVIDELOL [Concomitant]
  5. GLIPIZIDE. [Concomitant]
     Active Substance: GLIPIZIDE
  6. BUPROPRION [Concomitant]
     Active Substance: BUPROPION

REACTIONS (3)
  - Drug ineffective [None]
  - Product substitution issue [None]
  - Unevaluable event [None]

NARRATIVE: CASE EVENT DATE: 20190118
